FAERS Safety Report 9051504 (Version 1)
Quarter: 2013Q1

REPORT INFORMATION
  Report Type: Spontaneous
  Country: None (occurrence: US)
  Receive Date: 20130206
  Receipt Date: 20130206
  Transmission Date: 20140127
  Serious: No
  Sender: FDA-Public Use
  Company Number: US-ALLERGAN-1217970US

PATIENT
  Age: 77 Year
  Sex: Male

DRUGS (4)
  1. RESTASIS [Suspect]
     Indication: DRY EYE
     Dosage: 2 GTT, BID
     Route: 047
     Dates: start: 20121218
  2. REFRESH                            /00007001/ [Concomitant]
     Indication: DRY EYE
     Dosage: UNK
  3. UNSPECIFIED BLOOD PRESSURE MEDICINE [Concomitant]
     Indication: BLOOD PRESSURE
  4. UNSPECIFIED COPD MEDICINE [Concomitant]
     Indication: CHRONIC OBSTRUCTIVE PULMONARY DISEASE
     Dosage: UNK

REACTIONS (2)
  - Eye pain [Not Recovered/Not Resolved]
  - Eye irritation [Not Recovered/Not Resolved]
